FAERS Safety Report 20430136 (Version 1)
Quarter: 2022Q1

REPORT INFORMATION
  Report Type: Report from Study
  Country: US (occurrence: US)
  Receive Date: 20220204
  Receipt Date: 20220204
  Transmission Date: 20220423
  Serious: Yes (Death, Life-Threatening, Hospitalization)
  Sender: FDA-Public Use
  Company Number: 2020210071

PATIENT

DRUGS (11)
  1. ONCASPAR [Suspect]
     Active Substance: PEGASPARGASE
     Indication: Acute lymphocytic leukaemia
     Dosage: 2000 IU/M2, EVERY 4 WEEKS, ON DAYS 15 AND 43
     Route: 042
     Dates: start: 20200224
  2. ONCASPAR [Suspect]
     Active Substance: PEGASPARGASE
     Dosage: UNK DOSE, DAYS 2, 22
     Route: 042
     Dates: start: 20200424
  3. CYCLOPHOSPHAMIDE [Suspect]
     Active Substance: CYCLOPHOSPHAMIDE
     Indication: Acute lymphocytic leukaemia
     Dosage: 1000  MG/M2, ON DAYS 1 AND 29
     Route: 042
     Dates: start: 20100210
  4. CYTARABINE [Suspect]
     Active Substance: CYTARABINE
     Indication: Acute lymphocytic leukaemia
     Dosage: 75  MG/M2, ON DAYS 1-4, 8-11, 29-32, AND 36-39
     Route: 042
     Dates: start: 20100210
  5. METHOTREXATE SODIUM [Suspect]
     Active Substance: METHOTREXATE SODIUM
     Indication: Acute lymphocytic leukaemia
     Dosage: 15 MG, ON DAYS 1,8,15,22
     Route: 037
     Dates: start: 20100210
  6. METHOTREXATE SODIUM [Suspect]
     Active Substance: METHOTREXATE SODIUM
     Dosage: UNK, DAYS 1, 31
     Route: 037
     Dates: start: 20200423
  7. METHOTREXATE SODIUM [Suspect]
     Active Substance: METHOTREXATE SODIUM
     Dosage: UNK, DAYS 1,11,21,31,41
     Route: 042
     Dates: start: 20200423
  8. MERCAPTOPURINE [Suspect]
     Active Substance: MERCAPTOPURINE
     Indication: Acute lymphocytic leukaemia
     Dosage: 60 MG/M2 ON DAYS 1-14 AND 29-42
     Route: 048
     Dates: start: 20100210
  9. VINCRISTINE SULFATE [Suspect]
     Active Substance: VINCRISTINE SULFATE
     Indication: Acute lymphocytic leukaemia
     Dosage: 1.5 MG/M2MAX 2 MG, ON DAYS 15,22,43,50
     Route: 042
     Dates: start: 20100210
  10. VINCRISTINE SULFATE [Suspect]
     Active Substance: VINCRISTINE SULFATE
     Dosage: UNK, DAYS 1,11,21,31,41
     Route: 042
     Dates: start: 20200423
  11. TN UNSPECIFIED [Concomitant]
     Indication: Acute lymphocytic leukaemia
     Dosage: UNK
     Route: 065
     Dates: end: 20200123

REACTIONS (6)
  - Septic shock [Fatal]
  - Acute kidney injury [Recovered/Resolved]
  - Colitis [Recovering/Resolving]
  - Abdominal pain [Recovering/Resolving]
  - Vomiting [Not Recovered/Not Resolved]
  - Hypervolaemia [Unknown]

NARRATIVE: CASE EVENT DATE: 20200409
